FAERS Safety Report 16151134 (Version 1)
Quarter: 2019Q2

REPORT INFORMATION
  Report Type: Spontaneous
  Country: US (occurrence: US)
  Receive Date: 20190402
  Receipt Date: 20190402
  Transmission Date: 20190711
  Serious: No
  Sender: FDA-Public Use
  Company Number: None

PATIENT
  Age: 49 Year
  Sex: Female

DRUGS (4)
  1. ZYRTEC [Concomitant]
     Active Substance: CETIRIZINE HYDROCHLORIDE
  2. NASOCORT [Concomitant]
     Active Substance: BUDESONIDE
  3. VITAMIN D NOS [Concomitant]
     Active Substance: VITAMIN D NOS
  4. QVAR REDIHALER [Suspect]
     Active Substance: BECLOMETHASONE DIPROPIONATE
     Indication: ASTHMA
     Dosage: 1 PUFF IN THE MORNING, INHALATION
     Route: 055

REACTIONS (3)
  - Cough [None]
  - Drug ineffective [None]
  - Device difficult to use [None]

NARRATIVE: CASE EVENT DATE: 20190315
